FAERS Safety Report 25181652 (Version 5)
Quarter: 2025Q3

REPORT INFORMATION
  Report Type: Report from Study
  Country: US (occurrence: US)
  Receive Date: 20250410
  Receipt Date: 20250723
  Transmission Date: 20251021
  Serious: Yes (Hospitalization, Other)
  Sender: SUNOVION
  Company Number: US-SUMITOMO PHARMA SWITZERLAND GMBH-2025SPA002677

PATIENT

DRUGS (2)
  1. ORGOVYX [Suspect]
     Active Substance: RELUGOLIX
     Indication: Prostate cancer
     Dosage: 120 MG, QD
     Route: 048
     Dates: start: 20250305
  2. XTANDI [Concomitant]
     Active Substance: ENZALUTAMIDE
     Indication: Prostate cancer
     Dosage: 160 MG, QD
     Route: 065

REACTIONS (14)
  - Appendicitis [Unknown]
  - Vertigo positional [Unknown]
  - Laziness [Unknown]
  - Presyncope [Unknown]
  - Urinary incontinence [Unknown]
  - Drug hypersensitivity [Unknown]
  - Renal pain [Unknown]
  - Osteoporosis [Unknown]
  - Cystitis [Unknown]
  - Musculoskeletal stiffness [Unknown]
  - Bone pain [Unknown]
  - Myalgia [Unknown]
  - Fatigue [Unknown]
  - Incorrect dose administered [Unknown]
